FAERS Safety Report 9511681 (Version 1)
Quarter: 2013Q1

REPORT INFORMATION
  Report Type: Spontaneous
  Country: US (occurrence: None)
  Receive Date: 20130305
  Receipt Date: 20130305
  Transmission Date: 20140127
  Serious: Yes (Other)
  Sender: FDA-Public Use
  Company Number: 163-21880-12051875

PATIENT
  Age: 81 Year
  Sex: Female
  Weight: 67.1 kg

DRUGS (2)
  1. REVLIMID (LENALIDOMIDE) (15 MILLIGRAM, CAPSULES) [Suspect]
     Indication: PLASMA CELL MYELOMA
     Dosage: 15 MG, 21 IN 28 D, PO?
     Route: 048
     Dates: start: 20120127
  2. DEXAMETHASONE (DEXAMETHASONE) (UNKNOWN) [Concomitant]

REACTIONS (2)
  - Local swelling [None]
  - Diarrhoea [None]
